FAERS Safety Report 8101831-7 (Version None)
Quarter: 2012Q1

REPORT INFORMATION
  Report Type: 
  Country: None (occurrence: None)
  Receive Date: 20120131
  Receipt Date: 20120131
  Transmission Date: 20120608
  Serious: No
  Sender: FDA-Public Use
  Company Number: US-B.I. PHARMACEUTICALS,INC./RIDGEFIELD-2012-BP-00170BP

PATIENT
  Sex: Male

DRUGS (7)
  1. FLAXSEED OIL [Concomitant]
     Dosage: 300 MG
  2. LOVAZA [Concomitant]
     Dosage: 2000 MG
  3. GLIMEPIRIDE [Concomitant]
     Indication: TYPE 2 DIABETES MELLITUS
     Dosage: 4 MG
     Route: 048
  4. TRADJENTA [Suspect]
     Indication: TYPE 2 DIABETES MELLITUS
     Dosage: 5 MG
     Route: 048
     Dates: start: 20111219
  5. LISINOPRIL [Concomitant]
     Dosage: 20 MG
     Route: 048
  6. VITAMIN D [Concomitant]
     Dosage: 2000 U
  7. CINNAMON [Concomitant]
     Dosage: 1000 MG

REACTIONS (2)
  - RASH PUSTULAR [None]
  - ERYTHEMA [None]
